FAERS Safety Report 25147881 (Version 1)
Quarter: 2025Q2

REPORT INFORMATION
  Report Type: Spontaneous
  Country: JP (occurrence: JP)
  Receive Date: 20250402
  Receipt Date: 20250402
  Transmission Date: 20250717
  Serious: Yes (Other)
  Sender: EMD SERONO INC
  Company Number: JP-Merck Healthcare KGaA-2025015685

PATIENT
  Age: 59 Year
  Sex: Female
  Weight: 90 kg

DRUGS (5)
  1. METGLUCO [Suspect]
     Active Substance: METFORMIN HYDROCHLORIDE
     Indication: Type 2 diabetes mellitus
     Dosage: JUL TO AUG (UNSPECIFIED YEAR)
  2. TIRZEPATIDE [Suspect]
     Active Substance: TIRZEPATIDE
     Indication: Type 2 diabetes mellitus
     Dosage: MID-JUN TO JUL (UNSPECIFIED YEAR)
  3. TIRZEPATIDE [Suspect]
     Active Substance: TIRZEPATIDE
     Dosage: JUL TO AUG (UNSPECIFIED YEAR)
  4. INSULIN NOS [Suspect]
     Active Substance: INSULIN NOS
     Indication: Type 2 diabetes mellitus
  5. INSULIN NOS [Suspect]
     Active Substance: INSULIN NOS

REACTIONS (7)
  - Cushing^s syndrome [Unknown]
  - Impaired gastric emptying [Unknown]
  - Mass [Unknown]
  - Hepatic steatosis [Unknown]
  - Cholelithiasis [Unknown]
  - Nephropathy [Unknown]
  - Weight decreased [Unknown]
